FAERS Safety Report 7369248-0 (Version None)
Quarter: 2011Q1

REPORT INFORMATION
  Report Type: 
  Country: None (occurrence: None)
  Receive Date: 20110314
  Receipt Date: 20110304
  Transmission Date: 20110831
  Serious: Yes (Other)
  Sender: FDA-Public Use
  Company Number: DKLU1068830

PATIENT
  Age: 2 Year
  Sex: Male

DRUGS (4)
  1. CARNITINE (CARNITINE) [Concomitant]
  2. SABRIL [Suspect]
     Indication: INFANTILE SPASMS
     Dosage: 9 ML MILLILITRE(S), 3 IN 1 D, ORAL
     Route: 048
     Dates: start: 20090501
  3. DEPAKOTE [Concomitant]
  4. CLONAZAPEM(CLONAZEPAM) (TABLET) [Concomitant]

REACTIONS (1)
  - RETINOGRAM ABNORMAL [None]
